FAERS Safety Report 26119662 (Version 1)
Quarter: 2025Q4

REPORT INFORMATION
  Report Type: Spontaneous
  Country: US (occurrence: US)
  Receive Date: 20251204
  Receipt Date: 20251204
  Transmission Date: 20260118
  Serious: Yes (Hospitalization, Other)
  Sender: EDENBRIDGE PHARMACEUTICALS
  Company Number: US-EDENBRIDGE PHARMACEUTICALS, LLC-US-2025EDE000043

PATIENT
  Age: 42 Year
  Sex: Male

DRUGS (1)
  1. LOPERAMIDE [Suspect]
     Active Substance: LOPERAMIDE
     Indication: Drug withdrawal syndrome
     Dosage: 100 TO 200 MG DAILY
     Route: 065

REACTIONS (8)
  - Seizure [Recovered/Resolved]
  - Myocardial infarction [Unknown]
  - Ventricular arrhythmia [Recovered/Resolved]
  - Cardiac arrest [Unknown]
  - Electrolyte imbalance [Unknown]
  - Blood catecholamines increased [Unknown]
  - Drug withdrawal syndrome [Unknown]
  - Drug abuse [Unknown]
